FAERS Safety Report 6522940-X (Version None)
Quarter: 2009Q4

REPORT INFORMATION
  Report Type: 
  Country: None (occurrence: None)
  Receive Date: 20091230
  Receipt Date: 20091221
  Transmission Date: 20100525
  Serious: Yes (Hospitalization)
  Sender: FDA-Public Use
  Company Number: DE-GENENTECH-296132

PATIENT
  Sex: Female
  Weight: 82 kg

DRUGS (6)
  1. RITUXIMAB [Suspect]
     Indication: RHEUMATOID ARTHRITIS
     Dosage: UNK
     Route: 042
     Dates: start: 20070719
  2. PREDNISOLONE [Concomitant]
     Indication: RHEUMATOID ARTHRITIS
     Dosage: UNK
     Route: 048
     Dates: start: 20050401
  3. SULFASALAZIN [Concomitant]
     Indication: RHEUMATOID ARTHRITIS
     Dosage: UNK
     Route: 048
     Dates: start: 20050501
  4. LEVOTHYROXINE SODIUM [Concomitant]
     Indication: HYPOTHYROIDISM
     Dosage: LONG-TERM MEDICATION
     Route: 048
  5. FLUOXETINE HCL [Concomitant]
     Indication: DEPRESSION
     Dosage: LONG-TERM MEDICATION
     Route: 048
  6. PRAVASTATIN [Concomitant]
     Indication: HYPERCHOLESTEROLAEMIA
     Dosage: LONG-TERM MEDICATION
     Route: 048

REACTIONS (3)
  - ADNEXA UTERI CYST [None]
  - COLITIS [None]
  - SALPINGO-OOPHORITIS [None]
